FAERS Safety Report 6917332-5 (Version None)
Quarter: 2010Q3

REPORT INFORMATION
  Report Type: 
  Country: None (occurrence: None)
  Receive Date: 20100805
  Receipt Date: 20100729
  Transmission Date: 20110219
  Serious: Yes (Hospitalization)
  Sender: FDA-Public Use
  Company Number: WAES 1007USA03946

PATIENT
  Age: 59 Year
  Sex: Female

DRUGS (12)
  1. CLINORIL [Suspect]
     Indication: RHEUMATOID ARTHRITIS
     Dosage: 100 MG/BID PO
     Route: 048
     Dates: start: 20060213
  2. TASOCITINIB [Suspect]
     Indication: RHEUMATOID ARTHRITIS
     Dosage: 5 MG/BID PO
     Route: 048
     Dates: start: 20090911, end: 20100713
  3. PREDNISOLONE [Suspect]
     Indication: RHEUMATOID ARTHRITIS
     Dosage: 2 MG/BID PO
     Route: 048
     Dates: start: 20060213
  4. ACEMAIL [Concomitant]
  5. ADALAT [Concomitant]
  6. ALFAROL [Concomitant]
  7. AMLODIN OD [Concomitant]
  8. ASTAT [Concomitant]
  9. BLOPRESS [Concomitant]
  10. LIVALO [Concomitant]
  11. MAGMITT [Concomitant]
  12. MUCOSTA [Concomitant]

REACTIONS (1)
  - PERIOSTITIS [None]
